FAERS Safety Report 24548857 (Version 1)
Quarter: 2024Q4

REPORT INFORMATION
  Report Type: Spontaneous
  Country: US (occurrence: None)
  Receive Date: 20241024
  Receipt Date: 20241024
  Transmission Date: 20250115
  Serious: Yes (Hospitalization)
  Sender: Public
  Company Number: None

PATIENT
  Sex: Female

DRUGS (3)
  1. AMBRISENTAN [Suspect]
     Active Substance: AMBRISENTAN
     Indication: Pulmonary arterial hypertension
     Dosage: FREQUENCY : DAILY;?
     Route: 048
     Dates: start: 202402
  2. SILDENAFIL [Concomitant]
     Active Substance: SILDENAFIL
  3. TYVASO DPI MAINT KIT [Concomitant]

REACTIONS (3)
  - Dyspnoea [None]
  - Pneumothorax [None]
  - Therapy cessation [None]
